FAERS Safety Report 6480914-1 (Version None)
Quarter: 2009Q4

REPORT INFORMATION
  Report Type: 
  Country: None (occurrence: None)
  Receive Date: 20091208
  Receipt Date: 20091126
  Transmission Date: 20100525
  Serious: Yes (Disabling)
  Sender: FDA-Public Use
  Company Number: PHHY2009AU49309

PATIENT
  Sex: Female
  Weight: 73 kg

DRUGS (4)
  1. GLEEVEC [Suspect]
     Indication: CHRONIC MYELOID LEUKAEMIA
     Dosage: UNK
     Route: 048
     Dates: start: 19990101
  2. GLEEVEC [Suspect]
     Dosage: 300 MG, DAILY
     Route: 048
  3. VITAMINS NOS [Concomitant]
  4. CYMBALTA [Concomitant]
     Indication: DEPRESSION
     Dosage: UNK

REACTIONS (3)
  - AUTONOMIC NERVOUS SYSTEM IMBALANCE [None]
  - HOT FLUSH [None]
  - HYPERHIDROSIS [None]
